FAERS Safety Report 10645442 (Version 1)
Quarter: 2014Q4

REPORT INFORMATION
  Report Type: Spontaneous
  Country: US (occurrence: None)
  Receive Date: 20141209
  Receipt Date: 20141209
  Transmission Date: 20150529
  Serious: Yes (Hospitalization, Other)
  Sender: FDA-Public Use
  Company Number: LH201400458

PATIENT
  Age: 37 Year
  Sex: Female

DRUGS (4)
  1. LAMICTAL [Concomitant]
     Active Substance: LAMOTRIGINE
  2. PRENATAL VITAMINS /01549301/ (ASCORBIC ACID, BIOTIN, MINERALS NOS, NICOTINIC ACID, RETINOL, TOCOPHEROL, VITAMIN B NOS, VITAMIN D NOS) [Concomitant]
  3. MAKENA [Suspect]
     Active Substance: HYDROXYPROGESTERONE CAPROATE
     Indication: PREMATURE DELIVERY
     Dosage: ONCE WEEKLY
     Route: 030
     Dates: start: 201410, end: 20141106
  4. ZOLOFT [Concomitant]
     Active Substance: SERTRALINE HYDROCHLORIDE

REACTIONS (8)
  - Premature labour [None]
  - Exposure during pregnancy [None]
  - Peripheral swelling [None]
  - Pain in extremity [None]
  - Premature rupture of membranes [None]
  - Deep vein thrombosis [None]
  - Premature delivery [None]
  - Pulmonary embolism [None]

NARRATIVE: CASE EVENT DATE: 20141114
